FAERS Safety Report 8869481 (Version 1)
Quarter: 2012Q4

REPORT INFORMATION
  Report Type: 
  Country: US (occurrence: US)
  Receive Date: 20121026
  Receipt Date: 20121026
  Transmission Date: 20130627
  Serious: No
  Sender: FDA-Public Use
  Company Number: US-AMGEN-USASP2012044514

PATIENT
  Age: 38 Year
  Sex: Female

DRUGS (1)
  1. ENBREL [Suspect]
     Indication: PSORIATIC ARTHROPATHY
     Dosage: UNK mg, 2 times/wk
     Dates: start: 20080108

REACTIONS (3)
  - Foot deformity [Recovered/Resolved]
  - Limb injury [Recovered/Resolved]
  - Psoriatic arthropathy [Not Recovered/Not Resolved]
